FAERS Safety Report 13032244 (Version 2)
Quarter: 2016Q4

REPORT INFORMATION
  Report Type: Spontaneous
  Country: JP (occurrence: JP)
  Receive Date: 20161215
  Receipt Date: 20161230
  Transmission Date: 20170207
  Serious: Yes (Other)
  Sender: FDA-Public Use
  Company Number: JP-PFM-2016-02779

PATIENT
  Age: 4 Month
  Sex: Female

DRUGS (2)
  1. HEMANGIOL [Suspect]
     Active Substance: PROPRANOLOL HYDROCHLORIDE
     Dosage: 4.3 ML (2/1 DAY), 2 MG/KG
     Route: 048
     Dates: start: 20161118
  2. HEMANGIOL [Suspect]
     Active Substance: PROPRANOLOL HYDROCHLORIDE
     Indication: INFANTILE HAEMANGIOMA
     Dosage: 2.1 ML (2/1 DAY), 1 MG/KG
     Route: 048
     Dates: start: 20161115, end: 20161118

REACTIONS (2)
  - Blood potassium increased [Recovered/Resolved]
  - Vomiting [Unknown]

NARRATIVE: CASE EVENT DATE: 20161115
